FAERS Safety Report 4310457-2 (Version None)
Quarter: 2004Q1

REPORT INFORMATION
  Report Type: 
  Country: None (occurrence: None)
  Receive Date: 20040301
  Receipt Date: 20031110
  Transmission Date: 20041129
  Serious: No
  Sender: FDA-Public Use
  Company Number: WAES 0311USA01340

PATIENT

DRUGS (1)
  1. ZETIA [Suspect]
     Dosage: 10 MG
     Route: 048

REACTIONS (1)
  - HEPATIC ENZYME INCREASED [None]
